FAERS Safety Report 20921135 (Version 3)
Quarter: 2022Q3

REPORT INFORMATION
  Report Type: Report from Study
  Country: CA (occurrence: CA)
  Receive Date: 20220606
  Receipt Date: 20220707
  Transmission Date: 20221026
  Serious: Yes (Other)
  Sender: FDA-Public Use
  Company Number: CA-TAKEDA-2022TUS011928

PATIENT
  Age: 85 Year
  Sex: Female

DRUGS (11)
  1. VEDOLIZUMAB [Suspect]
     Active Substance: VEDOLIZUMAB
     Indication: Crohn^s disease
     Dosage: 300 MILLIGRAM
     Route: 042
     Dates: start: 20211111
  2. VEDOLIZUMAB [Suspect]
     Active Substance: VEDOLIZUMAB
     Dosage: 300 MILLIGRAM
     Route: 042
  3. VEDOLIZUMAB [Suspect]
     Active Substance: VEDOLIZUMAB
     Dosage: 300 MILLIGRAM
     Route: 042
  4. VEDOLIZUMAB [Suspect]
     Active Substance: VEDOLIZUMAB
     Dosage: 300 MILLIGRAM, Q4WEEKS
     Route: 042
     Dates: start: 20220704
  5. AMLODIPINE [Concomitant]
     Active Substance: AMLODIPINE BESYLATE
     Dosage: UNK
  6. CORTISONE [Concomitant]
     Active Substance: CORTISONE
     Dosage: UNK
  7. MORPHINE [Concomitant]
     Active Substance: MORPHINE
     Dosage: 54 MILLIGRAM, QD
  8. RAMIPRIL [Concomitant]
     Active Substance: RAMIPRIL
     Dosage: UNK
  9. PREDNISONE [Concomitant]
     Active Substance: PREDNISONE
     Dosage: UNK
  10. IRON [Concomitant]
     Active Substance: IRON
     Dosage: UNK
  11. DILAUDID [Concomitant]
     Active Substance: HYDROMORPHONE HYDROCHLORIDE
     Dosage: UNK

REACTIONS (3)
  - Crohn^s disease [Unknown]
  - Anaemia [Unknown]
  - Off label use [Unknown]

NARRATIVE: CASE EVENT DATE: 20220704
